FAERS Safety Report 13582241 (Version 4)
Quarter: 2018Q2

REPORT INFORMATION
  Report Type: Report from Study
  Country: US (occurrence: US)
  Receive Date: 20170525
  Receipt Date: 20180621
  Transmission Date: 20180711
  Serious: No
  Sender: FDA-Public Use
  Company Number: PHEH2017US014818

PATIENT
  Age: 51 Year
  Sex: Female

DRUGS (3)
  1. STELARA [Suspect]
     Active Substance: USTEKINUMAB
     Indication: PRODUCT USED FOR UNKNOWN INDICATION
     Dosage: UNK
     Route: 065
  2. COSENTYX [Suspect]
     Active Substance: SECUKINUMAB
     Indication: PSORIASIS
     Dosage: 300 MG, QMO
     Route: 058
     Dates: start: 201705
  3. COSENTYX [Suspect]
     Active Substance: SECUKINUMAB
     Indication: PSORIATIC ARTHROPATHY
     Dosage: 300 MG, QMO
     Route: 058
     Dates: start: 20170601

REACTIONS (9)
  - Fall [Unknown]
  - Ligament sprain [Unknown]
  - Urinary tract infection [Unknown]
  - Alopecia [Unknown]
  - Drug effect incomplete [Unknown]
  - Erythema [Unknown]
  - Meniscus injury [Unknown]
  - Injection site bruising [Unknown]
  - Localised infection [Unknown]

NARRATIVE: CASE EVENT DATE: 20170601
